FAERS Safety Report 9070848 (Version 1)
Quarter: 2013Q1

REPORT INFORMATION
  Report Type: Spontaneous
  Country: US (occurrence: US)
  Receive Date: 20130206
  Receipt Date: 20130206
  Transmission Date: 20140127
  Serious: No
  Sender: FDA-Public Use
  Company Number: US-ALLERGAN-1205899US

PATIENT
  Sex: Female

DRUGS (2)
  1. RESTASIS? [Suspect]
     Indication: LACRIMATION INCREASED
     Dosage: 2 GTT, BID
     Route: 047
     Dates: start: 201203
  2. XALATAN                            /01297301/ [Concomitant]
     Indication: LACRIMATION INCREASED
     Dosage: 2 GTT, QHS
     Route: 047

REACTIONS (1)
  - Drug ineffective [Unknown]
